FAERS Safety Report 21443288 (Version 1)
Quarter: 2022Q4

REPORT INFORMATION
  Report Type: Spontaneous
  Country: ES (occurrence: ES)
  Receive Date: 20221012
  Receipt Date: 20221012
  Transmission Date: 20230113
  Serious: Yes (Life-Threatening, Hospitalization)
  Sender: FDA-Public Use
  Company Number: ES-GLAXOSMITHKLINE-ES2022082778

PATIENT
  Age: 19 Year
  Sex: Female

DRUGS (6)
  1. ACETAMINOPHEN [Suspect]
     Active Substance: ACETAMINOPHEN
     Indication: Overdose
     Dosage: 18 GRAM, SINGLE
     Route: 048
     Dates: start: 20220226, end: 20220226
  2. LORAZEPAM [Suspect]
     Active Substance: LORAZEPAM
     Indication: Overdose
     Dosage: 20 MG, SINGLE
     Route: 048
     Dates: start: 20220226, end: 20220226
  3. LORAZEPAM [Concomitant]
     Active Substance: LORAZEPAM
     Indication: Anxiety
     Dosage: 1 MG, PRN
     Route: 048
     Dates: start: 20220301
  4. PAROXETINE [Concomitant]
     Active Substance: PAROXETINE
     Indication: Anxiety
     Dosage: 10 MILLIGRAM, DAILY, 10 MG, 1D
     Route: 048
     Dates: start: 20220217, end: 20220225
  5. PAROXETINE [Concomitant]
     Active Substance: PAROXETINE
     Dosage: 20 MILLIGRAM, DAILY, 20 MG, 1D
     Route: 048
     Dates: start: 20220301, end: 202203
  6. ACETYLCYSTEINE [Concomitant]
     Active Substance: ACETYLCYSTEINE
     Indication: Toxicity to various agents
     Dosage: 5 G, SINGLE
     Route: 065
     Dates: start: 20220226, end: 20220226

REACTIONS (2)
  - Suicide attempt [Recovered/Resolved]
  - Overdose [Recovered/Resolved]

NARRATIVE: CASE EVENT DATE: 20220226
